FAERS Safety Report 4580011-6 (Version None)
Quarter: 2005Q1

REPORT INFORMATION
  Report Type: 
  Country: None (occurrence: None)
  Receive Date: 20050214
  Receipt Date: 20050131
  Transmission Date: 20050727
  Serious: Yes (Other)
  Sender: FDA-Public Use
  Company Number: US-GLAXOSMITHKLINE-A0543027A

PATIENT
  Age: 13 Year
  Sex: Male

DRUGS (1)
  1. OXY BALANCE ACNE WASH MAXIMUM STRENGTH [Suspect]
     Indication: ACNE
     Route: 061
     Dates: start: 20041101

REACTIONS (2)
  - ACCIDENTAL EXPOSURE [None]
  - GRAND MAL CONVULSION [None]
